FAERS Safety Report 4292737-2 (Version None)
Quarter: 2004Q1

REPORT INFORMATION
  Report Type: 
  Country: None (occurrence: None)
  Receive Date: 20040211
  Receipt Date: 20030407
  Transmission Date: 20041129
  Serious: Yes (Other)
  Sender: FDA-Public Use
  Company Number: WAES 0304USA00752

PATIENT
  Age: 59 Year
  Sex: Male
  Weight: 100 kg

DRUGS (7)
  1. LITHIUM CARBONATE [Concomitant]
     Dates: start: 19800101
  2. VIOXX [Suspect]
     Indication: RHEUMATOID ARTHRITIS
     Route: 048
     Dates: start: 19990101, end: 20010101
  3. VIOXX [Suspect]
     Route: 048
     Dates: start: 19990101, end: 20010101
  4. VIOXX [Suspect]
     Route: 048
     Dates: start: 19990101, end: 20010101
  5. VIOXX [Suspect]
     Indication: ARTHRALGIA
     Route: 048
     Dates: start: 19990101, end: 20010101
  6. VIOXX [Suspect]
     Route: 048
     Dates: start: 19990101, end: 20010101
  7. VIOXX [Suspect]
     Route: 048
     Dates: start: 19990101, end: 20010101

REACTIONS (7)
  - AGGRESSION [None]
  - ANXIETY [None]
  - DEPRESSION [None]
  - HEART INJURY [None]
  - HEART RATE IRREGULAR [None]
  - PARANOIA [None]
  - SUICIDAL IDEATION [None]
